FAERS Safety Report 6404046-3 (Version None)
Quarter: 2009Q4

REPORT INFORMATION
  Report Type: 
  Country: None (occurrence: None)
  Receive Date: 20091016
  Receipt Date: 20090821
  Transmission Date: 20100525
  Serious: No
  Sender: FDA-Public Use
  Company Number: US-ALEXION-A200900680

PATIENT
  Sex: Female

DRUGS (7)
  1. SOLIRIS [Suspect]
     Indication: PAROXYSMAL NOCTURNAL HAEMOGLOBINURIA
     Dosage: 600 MG QW X4
     Route: 042
     Dates: start: 20090422, end: 20090513
  2. SOLIRIS [Suspect]
     Dosage: 900 MG
     Route: 042
     Dates: start: 20090520
  3. ARIXTRA [Concomitant]
     Indication: THROMBOSIS PROPHYLAXIS
     Dosage: 7.5 MG QD
     Route: 048
  4. COLACE [Concomitant]
     Indication: CONSTIPATION
     Dosage: 100 MG BID
     Route: 048
  5. SENNA-MINT WAF [Concomitant]
     Indication: CONSTIPATION
     Dosage: 86 MG QD
     Route: 048
  6. FOLIC ACID [Concomitant]
     Dosage: 1 MG QD
     Route: 048
  7. IRON [Concomitant]
     Indication: SUPPLEMENTATION THERAPY
     Dosage: 325 MG QD
     Route: 048

REACTIONS (1)
  - ALOPECIA [None]
